FAERS Safety Report 6137113-2 (Version None)
Quarter: 2009Q1

REPORT INFORMATION
  Report Type: 
  Country: None (occurrence: None)
  Receive Date: 20090330
  Receipt Date: 20090316
  Transmission Date: 20090719
  Serious: Yes (Hospitalization)
  Sender: FDA-Public Use
  Company Number: TR-BAUSCH-2009BL001195

PATIENT
  Age: 24 Year
  Sex: Female

DRUGS (1)
  1. DICLOFENAC [Suspect]
     Indication: PUBIC PAIN
     Route: 030

REACTIONS (1)
  - NECROTISING FASCIITIS [None]
